FAERS Safety Report 12884586 (Version 4)
Quarter: 2017Q1

REPORT INFORMATION
  Report Type: Spontaneous
  Country: US (occurrence: US)
  Receive Date: 20161026
  Receipt Date: 20170208
  Transmission Date: 20170428
  Serious: Yes (Other)
  Sender: FDA-Public Use
  Company Number: US-SA-2016SA193734

PATIENT
  Age: 40 Year
  Sex: Male
  Weight: 90.72 kg

DRUGS (2)
  1. SELSUN BLUE NATURALS ITCHY, DRY SCALP [Suspect]
     Active Substance: SALICYLIC ACID
     Indication: PRURITUS
     Dosage: 1 DOSE AND USED ONE ON THAT DAY
     Route: 065
     Dates: start: 20161009, end: 20161010
  2. SELSUN BLUE NATURALS ITCHY, DRY SCALP [Suspect]
     Active Substance: SALICYLIC ACID
     Indication: DRY SKIN
     Dosage: 1 DOSE AND USED ONE ON THAT DAY
     Route: 065
     Dates: start: 20161009, end: 20161010

REACTIONS (8)
  - Eye disorder [Not Recovered/Not Resolved]
  - Vision blurred [Not Recovered/Not Resolved]
  - Blindness [Not Recovered/Not Resolved]
  - Colour blindness [Not Recovered/Not Resolved]
  - Eye irritation [Not Recovered/Not Resolved]
  - Headache [Not Recovered/Not Resolved]
  - Visual impairment [Not Recovered/Not Resolved]
  - Eye pain [Not Recovered/Not Resolved]

NARRATIVE: CASE EVENT DATE: 20161009
